FAERS Safety Report 23711863 (Version 2)
Quarter: 2024Q2

REPORT INFORMATION
  Report Type: Spontaneous
  Country: FR (occurrence: FR)
  Receive Date: 20240405
  Receipt Date: 20240601
  Transmission Date: 20240716
  Serious: Yes (Death, Life-Threatening, Hospitalization, Other)
  Sender: FDA-Public Use
  Company Number: None

PATIENT
  Age: 61 Year
  Sex: Male
  Weight: 87 kg

DRUGS (17)
  1. POTASSIUM CHLORIDE [Suspect]
     Active Substance: POTASSIUM CHLORIDE
     Indication: Product used for unknown indication
     Dosage: UNK
     Route: 048
  2. POTASSIUM CHLORIDE [Suspect]
     Active Substance: POTASSIUM CHLORIDE
     Indication: Product used for unknown indication
     Dosage: UNK: 2-0-0
     Route: 065
  3. PEMBROLIZUMAB [Suspect]
     Active Substance: PEMBROLIZUMAB
     Indication: Oesophageal carcinoma
     Dosage: UNK, LAST ADMIN DATE: 2023
     Route: 042
     Dates: start: 202305
  4. PEMBROLIZUMAB [Suspect]
     Active Substance: PEMBROLIZUMAB
     Indication: Oesophageal carcinoma
     Dosage: 200 MG
     Route: 042
     Dates: start: 20231106, end: 20240129
  5. PEMBROLIZUMAB [Suspect]
     Active Substance: PEMBROLIZUMAB
     Indication: Oesophageal carcinoma
     Dosage: UNK, FIRST ADMIN DATE: 2024
     Route: 042
     Dates: end: 20240217
  6. DOCETAXEL [Suspect]
     Active Substance: DOCETAXEL\DOCETAXEL ANHYDROUS
     Indication: Product used for unknown indication
     Dosage: UNK
     Route: 042
     Dates: end: 20240319
  7. CISPLATIN [Suspect]
     Active Substance: CISPLATIN
     Indication: Oesophageal carcinoma
     Dosage: UNK, LAST ADMIN DATE: 2023
     Route: 042
     Dates: start: 202305
  8. CISPLATIN [Suspect]
     Active Substance: CISPLATIN
     Indication: Oesophageal carcinoma
     Dosage: UNK
     Route: 042
     Dates: start: 20231106, end: 20240129
  9. LANSOPRAZOLE [Suspect]
     Active Substance: LANSOPRAZOLE
     Indication: Prophylaxis against gastrointestinal ulcer
     Dosage: 15 MILLIGRAM, QD, 0-0-1
     Route: 048
     Dates: end: 20240217
  10. INNOHEP [Suspect]
     Active Substance: TINZAPARIN SODIUM
     Indication: Thrombosis prophylaxis
     Dosage: 1 DOSAGE FORM, QD 1 DF, QD: 18 000 I.U. ANTI-XA/0.9 ML, SOLUTION FOR INJECTION (S.C.) IN PRE-FILL...
     Route: 058
     Dates: start: 2020, end: 20240129
  11. FLUOROURACIL [Suspect]
     Active Substance: FLUOROURACIL
     Indication: Oesophageal carcinoma
     Dosage: 8 GRAM, 3 WEEKS
     Route: 042
     Dates: start: 20231106, end: 20240203
  12. FLUOROURACIL [Suspect]
     Active Substance: FLUOROURACIL
     Indication: Oesophageal carcinoma
     Dosage: UNK, LAST ADMIN DATE: 2023
     Route: 042
     Dates: start: 202305
  13. PREDNISOLONE SODIUM METAZOATE [Suspect]
     Active Substance: PREDNISOLONE SODIUM METAZOATE
     Indication: Joint swelling
     Dosage: 80 MG, QD
     Route: 048
     Dates: start: 20240223, end: 20240323
  14. PREDNISOLONE SODIUM METAZOATE [Suspect]
     Active Substance: PREDNISOLONE SODIUM METAZOATE
     Indication: Joint swelling
     Dosage: 1 DF, QD (1 DOSAGE FORM, QD ), ORODISPERSIBLE TABLET, LAST ADMIN DATE: FEB 2024
     Route: 048
     Dates: start: 20240217
  15. PREDNISOLONE SODIUM METAZOATE [Suspect]
     Active Substance: PREDNISOLONE SODIUM METAZOATE
     Indication: Joint swelling
     Dosage: 70 MG, QD
     Route: 048
     Dates: start: 20240324
  16. OXYCODONE HYDROCHLORIDE [Concomitant]
     Active Substance: OXYCODONE HYDROCHLORIDE
     Indication: Product used for unknown indication
     Dosage: 1 DF (5MG), AS NECESSARY
     Route: 048
     Dates: end: 20240323
  17. BISOPROLOL FUMARATE [Concomitant]
     Active Substance: BISOPROLOL FUMARATE
     Indication: Product used for unknown indication
     Dosage: 5 MG, QD
     Route: 048
     Dates: start: 202402

REACTIONS (7)
  - Sepsis [Fatal]
  - Interstitial lung disease [Not Recovered/Not Resolved]
  - Respiratory alkalosis [Unknown]
  - Encephalitis [Recovering/Resolving]
  - Behaviour disorder [Recovering/Resolving]
  - Behaviour disorder [Recovered/Resolved]
  - Condition aggravated [Recovering/Resolving]

NARRATIVE: CASE EVENT DATE: 20240217
